FAERS Safety Report 14746175 (Version 1)
Quarter: 2018Q2

REPORT INFORMATION
  Report Type: Spontaneous
  Country: US (occurrence: US)
  Receive Date: 20180405
  Receipt Date: 20180405
  Transmission Date: 20180711
  Serious: No
  Sender: FDA-Public Use
  Company Number: None

PATIENT
  Sex: Female
  Weight: 72.9 kg

DRUGS (14)
  1. L-METHYLFOLATE [Concomitant]
     Active Substance: LEVOMEFOLIC ACID
  2. EXCEDRIN MIGRAIN [Concomitant]
  3. FISH OIL [Concomitant]
     Active Substance: FISH OIL
  4. WOMEN^S ONE A DAY MULTIPLE VITAMIN [Concomitant]
  5. BYSTOLIC [Concomitant]
     Active Substance: NEBIVOLOL HYDROCHLORIDE
  6. MICROZIDE [Concomitant]
     Active Substance: HYDROCHLOROTHIAZIDE
  7. DIAZEPAM. [Concomitant]
     Active Substance: DIAZEPAM
  8. VITAMIN D [Concomitant]
     Active Substance: CHOLECALCIFEROL
  9. INTEGRA [Concomitant]
     Active Substance: DIETARY SUPPLEMENT
  10. PROMETHAZINE [Concomitant]
     Active Substance: PROMETHAZINE\PROMETHAZINE HYDROCHLORIDE
  11. ARMOUR THYROID [Concomitant]
     Active Substance: THYROID, PORCINE
  12. MELATONIN [Concomitant]
     Active Substance: MELATONIN
  13. CEFUROXIME AXETIL 500 MG TAB [Suspect]
     Active Substance: CEFUROXIME AXETIL
     Indication: CHRONIC SINUSITIS
     Dosage: ?          QUANTITY:1 TABLET(S);?
     Route: 048
     Dates: start: 20180404, end: 20180405
  14. PAMATE [Concomitant]

REACTIONS (5)
  - Headache [None]
  - Fatigue [None]
  - Asthenia [None]
  - Pain [None]
  - Migraine [None]

NARRATIVE: CASE EVENT DATE: 20180405
